FAERS Safety Report 20315755 (Version 1)
Quarter: 2022Q1

REPORT INFORMATION
  Report Type: Spontaneous
  Country: US (occurrence: None)
  Receive Date: 20220110
  Receipt Date: 20220110
  Transmission Date: 20220423
  Serious: No
  Sender: FDA-Public Use
  Company Number: US-ROCHE-2822130

PATIENT
  Sex: Female

DRUGS (3)
  1. RITUXAN [Suspect]
     Active Substance: RITUXIMAB
     Indication: Cold type haemolytic anaemia
     Dosage: 4 TREATMENTS 1 WEEKS APART 2018 APRIL
     Route: 042
     Dates: start: 201804, end: 201804
  2. RITUXAN [Suspect]
     Active Substance: RITUXIMAB
     Indication: Diffuse large B-cell lymphoma
     Route: 042
     Dates: start: 20200710, end: 20201010
  3. BENDAMUSTINE [Concomitant]
     Active Substance: BENDAMUSTINE
     Indication: Cold type haemolytic anaemia
     Dates: start: 20200710, end: 20201010

REACTIONS (2)
  - Off label use [Unknown]
  - No adverse event [Unknown]
